FAERS Safety Report 8408940 (Version 4)
Quarter: 2012Q4

REPORT INFORMATION
  Report Type: Report from Study
  Country: CN (occurrence: CN)
  Receive Date: 20120216
  Receipt Date: 20121116
  Transmission Date: 20130627
  Serious: Yes (Death, Hospitalization)
  Sender: FDA-Public Use
  Company Number: CN-PFIZER INC-2011299310

PATIENT
  Age: 75 Year
  Sex: Male
  Weight: 73 kg

DRUGS (5)
  1. AXITINIB [Suspect]
     Indication: METASTATIC RENAL CELL CARCINOMA
     Dosage: 3 mg, 2x/day
     Route: 048
     Dates: start: 20100608, end: 20111022
  2. MONOPRIL [Concomitant]
     Indication: HYPERTENSION
     Dosage: 10 mg, 1x/day
     Route: 048
     Dates: start: 20100602
  3. METOPROLOL [Concomitant]
     Indication: HYPERTENSION
     Dosage: 25 mg, 2x/day
     Route: 048
     Dates: start: 20110315
  4. IRBESARTAN [Concomitant]
     Indication: HYPERTENSION
     Dosage: 150 mg, 1x/day
     Route: 048
     Dates: start: 20110315
  5. HYDROCHLOROTHIAZIDE [Concomitant]
     Indication: HYPERTENSION
     Dosage: 12.5 mg, 1x/day
     Route: 048
     Dates: start: 20110315

REACTIONS (1)
  - Upper gastrointestinal haemorrhage [Fatal]
